FAERS Safety Report 5512318-X (Version None)
Quarter: 2007Q4

REPORT INFORMATION
  Report Type: 
  Country: None (occurrence: None)
  Receive Date: 20071112
  Receipt Date: 20071025
  Transmission Date: 20080405
  Serious: No
  Sender: FDA-Public Use
  Company Number: A0689275A

PATIENT
  Sex: Male

DRUGS (1)
  1. VERAMYST [Suspect]
     Indication: MULTIPLE ALLERGIES
     Route: 045
     Dates: start: 20071008, end: 20071017

REACTIONS (2)
  - EPISTAXIS [None]
  - NASAL DRYNESS [None]
